FAERS Safety Report 5704605-7 (Version None)
Quarter: 2008Q2

REPORT INFORMATION
  Report Type: 
  Country: None (occurrence: None)
  Receive Date: 20080409
  Receipt Date: 20080331
  Transmission Date: 20081010
  Serious: Yes (Other)
  Sender: FDA-Public Use
  Company Number: JPI-P-003320

PATIENT
  Age: 31 Year
  Sex: Female
  Weight: 49.8957 kg

DRUGS (4)
  1. XYREM [Suspect]
     Indication: NARCOLEPSY
     Dosage: ORAL; 6 GM (3 GM, 2 IN 1 D), ORAL
     Route: 048
     Dates: start: 20071201
  2. ALCOHOL [Suspect]
     Indication: ALCOHOL USE
  3. HYDROCHLOROTHIAZIDE [Concomitant]
  4. ESCITALOPRAM OXALATE  (ESCITALORAM OXALATE) [Concomitant]

REACTIONS (5)
  - HEPATOSPLENOMEGALY [None]
  - INFECTIOUS MONONUCLEOSIS [None]
  - LOSS OF CONSCIOUSNESS [None]
  - NIGHT SWEATS [None]
  - WEIGHT DECREASED [None]
